FAERS Safety Report 7274696-3 (Version None)
Quarter: 2011Q1

REPORT INFORMATION
  Report Type: 
  Country: None (occurrence: None)
  Receive Date: 20110128
  Receipt Date: 20110113
  Transmission Date: 20110831
  Serious: Yes (Other)
  Sender: FDA-Public Use
  Company Number: 805242

PATIENT
  Age: 59 Year
  Sex: Female

DRUGS (2)
  1. OXALIPLATIN [Suspect]
     Indication: RECTAL CANCER
     Dosage: 160 MG MILLIGRAM(S), INTRAVENOUS
     Route: 042
     Dates: start: 20101228, end: 20101228
  2. XELODA [Concomitant]

REACTIONS (1)
  - IDIOSYNCRATIC DRUG REACTION [None]
